FAERS Safety Report 12926407 (Version 2)
Quarter: 2016Q4

REPORT INFORMATION
  Report Type: Spontaneous
  Country: CL (occurrence: CL)
  Receive Date: 20161109
  Receipt Date: 20161123
  Transmission Date: 20170207
  Serious: Yes (Hospitalization, Other)
  Sender: FDA-Public Use
  Company Number: CL-BIOMARINAP-CL-2016-111702

PATIENT
  Age: 8 Year
  Sex: Female

DRUGS (1)
  1. VIMIZIM [Suspect]
     Active Substance: ELOSULFASE ALFA
     Indication: MUCOPOLYSACCHARIDOSIS IV
     Dosage: 50 MG, UNK
     Route: 042
     Dates: start: 20151218

REACTIONS (6)
  - Abnormal behaviour [Recovered/Resolved]
  - Dyskinesia [Recovered/Resolved]
  - Dizziness [Recovered/Resolved]
  - General physical health deterioration [Recovered/Resolved]
  - Speech disorder [Recovered/Resolved]
  - Confusional state [Recovered/Resolved]

NARRATIVE: CASE EVENT DATE: 20161029
